FAERS Safety Report 5155667-X (Version None)
Quarter: 2006Q4

REPORT INFORMATION
  Report Type: 
  Country: None (occurrence: None)
  Receive Date: 20061121
  Receipt Date: 20061116
  Transmission Date: 20070319
  Serious: Yes (Disabling)
  Sender: FDA-Public Use
  Company Number: GB-MERCK-0611GBR00097

PATIENT
  Age: 42 Year
  Sex: Female

DRUGS (8)
  1. SINGULAIR [Suspect]
     Route: 048
  2. OMEPRAZOLE [Concomitant]
     Route: 065
  3. PERINDOPRIL [Concomitant]
     Route: 065
  4. CALCIUM CARBONATE AND CHOLECALCIFEROL [Concomitant]
     Route: 065
  5. BECLOMETHASONE DIPROPIONATE [Concomitant]
     Route: 065
  6. ACETAMINOPHEN [Concomitant]
     Route: 065
  7. TRAMADOL HCL [Concomitant]
     Route: 065
  8. FEXOFENADINE HCL [Concomitant]
     Route: 065

REACTIONS (1)
  - ARTHRITIS [None]
